FAERS Safety Report 16967262 (Version 1)
Quarter: 2020Q3

REPORT INFORMATION
  Report Type: Report from Study
  Country: ES (occurrence: ES)
  Receive Date: 20191028
  Receipt Date: 20191028
  Transmission Date: 20201104
  Serious: Yes (Hospitalization)
  Sender: FDA-Public Use
  Company Number: ES-JNJFOC-20191031230

PATIENT
  Age: 79 Year
  Sex: Female
  Weight: 53 kg

DRUGS (3)
  1. PARACETAMOL [Concomitant]
     Active Substance: ACETAMINOPHEN
     Indication: BACK PAIN
     Dosage: 1 G, EVERY 8 HOURS
     Route: 048
     Dates: start: 20191007
  2. IBRUTINIB [Suspect]
     Active Substance: IBRUTINIB
     Indication: B-CELL LYMPHOMA
     Route: 065
     Dates: start: 20190722, end: 20191009
  3. RITUXIMAB. [Suspect]
     Active Substance: RITUXIMAB
     Indication: B-CELL LYMPHOMA
     Dosage: 375 MG/M2, EVERY TWO MONTHS
     Route: 042
     Dates: start: 20190722

REACTIONS (3)
  - Cardiac failure [Not Recovered/Not Resolved]
  - Lung infiltration [Not Recovered/Not Resolved]
  - Atrial fibrillation [Not Recovered/Not Resolved]

NARRATIVE: CASE EVENT DATE: 20191010
